FAERS Safety Report 4438416-X (Version None)
Quarter: 2004Q3

REPORT INFORMATION
  Report Type: 
  Country: None (occurrence: None)
  Receive Date: 20040728
  Receipt Date: 20040304
  Transmission Date: 20050211
  Serious: No
  Sender: FDA-Public Use
  Company Number: USA040360956

PATIENT
  Age: 9 Year
  Sex: Male

DRUGS (1)
  1. STRATTERA [Suspect]
     Dosage: 25 MG

REACTIONS (4)
  - DISTURBANCE IN ATTENTION [None]
  - MALAISE [None]
  - MYDRIASIS [None]
  - RESTLESSNESS [None]
